FAERS Safety Report 24396175 (Version 1)
Quarter: 2024Q4

REPORT INFORMATION
  Report Type: Spontaneous
  Country: US (occurrence: US)
  Receive Date: 20241004
  Receipt Date: 20241004
  Transmission Date: 20250114
  Serious: Yes (Life-Threatening, Hospitalization)
  Sender: MYLAN
  Company Number: US-MYLANLABS-2024M1090622

PATIENT
  Age: 59 Year
  Sex: Male

DRUGS (11)
  1. AMLODIPINE [Suspect]
     Active Substance: AMLODIPINE BESYLATE
     Indication: Hypertension
     Dosage: UNK
     Route: 065
  2. NOREPINEPHRINE [Suspect]
     Active Substance: NOREPINEPHRINE\NOREPINEPHRINE BITARTRATE
     Indication: Shock
     Dosage: UNK
     Route: 065
  3. EPINEPHRINE [Suspect]
     Active Substance: EPINEPHRINE
     Indication: Shock
     Dosage: UNK
     Route: 065
  4. CALCIUM CHLORIDE [Suspect]
     Active Substance: CALCIUM CHLORIDE
     Indication: Shock
     Dosage: UNK, MULTIPLE AMPULES OF CALCIUM CHLORIDE
     Route: 065
  5. ATROPINE [Suspect]
     Active Substance: ATROPINE
     Indication: Shock
     Dosage: UNK, TWO DOSES OF ATROPINE
     Route: 065
  6. INSULIN NOS [Suspect]
     Active Substance: INSULIN NOS
     Indication: Shock
     Dosage: 1 MICROGRAM/KILOGRAM, QH, INSULIN DRIP
     Route: 065
  7. INSULIN NOS [Suspect]
     Active Substance: INSULIN NOS
     Dosage: UNK, DRIP RATE WAS INCREASED
     Route: 042
  8. GLUCAGON [Suspect]
     Active Substance: GLUCAGON
     Indication: Shock
     Dosage: UNK
     Route: 065
  9. VASOPRESSIN [Suspect]
     Active Substance: VASOPRESSIN
     Indication: Shock
     Dosage: UNK
     Route: 065
  10. DEXTROSE [Suspect]
     Active Substance: DEXTROSE MONOHYDRATE
     Indication: Shock
     Dosage: UNK, GLUCOSE DRIP
     Route: 065
  11. FAT EMULSION NOS [Suspect]
     Active Substance: EGG PHOSPHOLIPIDS\SAFFLOWER OIL\SOYBEAN OIL
     Indication: Shock
     Dosage: 250 MILLILITER, QMINUTE, INTRAVENOUS BOLUS
     Route: 042

REACTIONS (4)
  - Sinus bradycardia [Recovering/Resolving]
  - Shock [Recovering/Resolving]
  - Accidental overdose [Recovering/Resolving]
  - Drug ineffective [Unknown]
